FAERS Safety Report 22665161 (Version 2)
Quarter: 2024Q3

REPORT INFORMATION
  Report Type: Spontaneous
  Country: US (occurrence: US)
  Receive Date: 20230703
  Receipt Date: 20240717
  Transmission Date: 20241017
  Serious: Yes (Other)
  Sender: RANBAXY
  Company Number: US-SUN PHARMACEUTICAL INDUSTRIES LTD-2023R1-395709

PATIENT
  Age: 18 Year
  Sex: Male

DRUGS (3)
  1. MEMANTINE [Suspect]
     Active Substance: MEMANTINE
     Indication: Phelan-McDermid syndrome
     Dosage: 20MG DAILY
     Route: 065
  2. OLANZAPINE [Suspect]
     Active Substance: OLANZAPINE
     Indication: Phelan-McDermid syndrome
     Dosage: UP TO 30MG DAILY
     Route: 065
  3. VALPROATE [Suspect]
     Active Substance: VALPROIC ACID
     Indication: Phelan-McDermid syndrome
     Dosage: UP TO 3G DAILY
     Route: 065

REACTIONS (1)
  - Therapeutic response decreased [Unknown]
